FAERS Safety Report 4437467-9 (Version None)
Quarter: 2004Q3

REPORT INFORMATION
  Report Type: 
  Country: None (occurrence: None)
  Receive Date: 20040830
  Receipt Date: 20040820
  Transmission Date: 20050211
  Serious: Yes (Disabling, Other)
  Sender: FDA-Public Use
  Company Number: US-MERCK-0408USA01698

PATIENT
  Age: 30 Year
  Sex: Male
  Weight: 80 kg

DRUGS (2)
  1. VIOXX [Suspect]
     Indication: ARTHRALGIA
     Route: 048
     Dates: start: 20040812, end: 20040801
  2. VIOXX [Suspect]
     Indication: BURSITIS
     Route: 048
     Dates: start: 20040812, end: 20040801

REACTIONS (1)
  - ARTHRALGIA [None]
